FAERS Safety Report 6981528-7 (Version None)
Quarter: 2010Q3

REPORT INFORMATION
  Report Type: 
  Country: None (occurrence: None)
  Receive Date: 20100914
  Receipt Date: 20100908
  Transmission Date: 20110219
  Serious: Yes (Death)
  Sender: FDA-Public Use
  Company Number: PHHY2010AT59769

PATIENT

DRUGS (1)
  1. TASIGNA [Suspect]
     Dosage: UNK

REACTIONS (1)
  - SUDDEN DEATH [None]
